FAERS Safety Report 5528884-4 (Version None)
Quarter: 2007Q4

REPORT INFORMATION
  Report Type: 
  Country: None (occurrence: None)
  Receive Date: 20071126
  Receipt Date: 20071026
  Transmission Date: 20080405
  Serious: Yes (Other)
  Sender: FDA-Public Use
  Company Number: FRPFM-L-20070014

PATIENT
  Age: 35 Year
  Sex: Female

DRUGS (4)
  1. NAVELBINE [Suspect]
     Indication: BREAST CANCER
     Dosage: 60 MG/M2 IV
     Route: 042
  2. FLUOROURACIL [Concomitant]
  3. DOXORUBICIN HCL [Concomitant]
  4. CYCLOPHOSPHAMIDE [Concomitant]

REACTIONS (4)
  - ANAEMIA [None]
  - DISEASE PROGRESSION [None]
  - DRUG EXPOSURE DURING PREGNANCY [None]
  - DRUG TOXICITY [None]
